FAERS Safety Report 6098708-8 (Version None)
Quarter: 2009Q1

REPORT INFORMATION
  Report Type: 
  Country: None (occurrence: None)
  Receive Date: 20090302
  Receipt Date: 20090218
  Transmission Date: 20090719
  Serious: Yes (Other)
  Sender: FDA-Public Use
  Company Number: GB-PFIZER INC-2008041331

PATIENT

DRUGS (6)
  1. DEPO-PROVERA [Suspect]
     Indication: CONTRACEPTION
     Dosage: FIRST INJECTION
     Route: 030
     Dates: start: 19990601, end: 19990601
  2. DEPO-PROVERA [Suspect]
     Route: 030
     Dates: start: 20070912, end: 20070912
  3. DEPO-PROVERA [Suspect]
     Route: 030
     Dates: start: 20071207, end: 20071207
  4. DEPO-PROVERA [Suspect]
     Dosage: LAST INJECTION
     Route: 030
     Dates: start: 20080229, end: 20080229
  5. SALBUTAMOL [Concomitant]
     Indication: ASTHMA
     Dosage: UNK
     Route: 045
     Dates: start: 20000101
  6. SERETIDE [Concomitant]
     Indication: ASTHMA
     Dosage: 250 MG, 2X/DAY
     Dates: start: 20000101

REACTIONS (3)
  - DRUG INEFFECTIVE [None]
  - THROMBOCYTOPENIC PURPURA [None]
  - UNINTENDED PREGNANCY [None]
